FAERS Safety Report 5010046-0 (Version None)
Quarter: 2006Q2

REPORT INFORMATION
  Report Type: 
  Country: None (occurrence: None)
  Receive Date: 20060523
  Receipt Date: 20060510
  Transmission Date: 20061013
  Serious: Yes (Other)
  Sender: FDA-Public Use
  Company Number: 2006064118

PATIENT
  Age: 26 Year
  Sex: Female

DRUGS (1)
  1. SOLU-CORTEF [Suspect]
     Indication: ILL-DEFINED DISORDER
     Dates: start: 20060509

REACTIONS (1)
  - SHOCK [None]
